FAERS Safety Report 16250997 (Version 1)
Quarter: 2019Q2

REPORT INFORMATION
  Report Type: Spontaneous
  Country: US (occurrence: US)
  Receive Date: 20190326
  Receipt Date: 20190326
  Transmission Date: 20190711
  Serious: No
  Sender: FDA-Public Use
  Company Number: None

PATIENT
  Age: 31 Year
  Sex: Female

DRUGS (1)
  1. GLATIRAMER 40MG  PFS INJ (12/BOX) [Suspect]
     Active Substance: GLATIRAMER
     Route: 058
     Dates: start: 201812

REACTIONS (3)
  - Pregnancy [None]
  - Therapy cessation [None]
  - Exposure during pregnancy [None]

NARRATIVE: CASE EVENT DATE: 20190325
